FAERS Safety Report 9832467 (Version 2)
Quarter: 2014Q1

REPORT INFORMATION
  Report Type: Other
  Country: DE (occurrence: ES)
  Receive Date: 20140121
  Receipt Date: 20140211
  Transmission Date: 20141002
  Serious: Yes (Death)
  Sender: FDA-Public Use
  Company Number: DE-ACTELION-A-US2014-93717

PATIENT
  Sex: Male

DRUGS (2)
  1. VENTAVIS BAYER SCHERING [Suspect]
     Indication: PULMONARY HYPERTENSION
     Route: 045
  2. SILDENAFIL [Concomitant]

REACTIONS (2)
  - Sudden death [Fatal]
  - Off label use [Unknown]
